FAERS Safety Report 7168136-2 (Version None)
Quarter: 2010Q4

REPORT INFORMATION
  Report Type: 
  Country: None (occurrence: None)
  Receive Date: 20101216
  Receipt Date: 20101206
  Transmission Date: 20110411
  Serious: Yes (Hospitalization, Other)
  Sender: FDA-Public Use
  Company Number: US-US-EMD SERONO, INC.-7009814

PATIENT
  Sex: Female

DRUGS (4)
  1. REBIF [Suspect]
     Indication: MULTIPLE SCLEROSIS
     Route: 058
     Dates: start: 20100319, end: 20101101
  2. PNEUMOVAX 23 [Suspect]
     Dates: start: 20100907, end: 20100907
  3. ORAL CONTRACEPTION [Concomitant]
     Indication: CONTRACEPTION
     Route: 048
  4. VALIUM [Concomitant]
     Indication: INSOMNIA

REACTIONS (9)
  - BACTERIAL DISEASE CARRIER [None]
  - DIABETES MELLITUS [None]
  - DIVERTICULITIS [None]
  - HEADACHE [None]
  - HYPOAESTHESIA [None]
  - INFLUENZA LIKE ILLNESS [None]
  - INJECTION SITE REACTION [None]
  - PARAESTHESIA [None]
  - VACCINATION SITE CELLULITIS [None]
